FAERS Safety Report 4959326-5 (Version None)
Quarter: 2006Q1

REPORT INFORMATION
  Report Type: 
  Country: None (occurrence: None)
  Receive Date: 20060331
  Receipt Date: 20060320
  Transmission Date: 20060701
  Serious: Yes (Life-Threatening, Hospitalization)
  Sender: FDA-Public Use
  Company Number: GB-JNJFOC-20060201244

PATIENT
  Sex: Female

DRUGS (3)
  1. RISPERIDONE [Suspect]
     Route: 048
  2. RISPERIDONE [Suspect]
     Indication: SCHIZOPHRENIA
     Route: 048
  3. THYROXINE [Concomitant]
     Indication: HYPOTHYROIDISM

REACTIONS (4)
  - HEART RATE IRREGULAR [None]
  - LABILE BLOOD PRESSURE [None]
  - MUSCLE RIGIDITY [None]
  - PYREXIA [None]
